FAERS Safety Report 21322642 (Version 1)
Quarter: 2022Q3

REPORT INFORMATION
  Report Type: Spontaneous
  Country: US (occurrence: US)
  Receive Date: 20220912
  Receipt Date: 20220912
  Transmission Date: 20221027
  Serious: Yes (Other)
  Sender: FDA-Public Use
  Company Number: US-NOVARTISPH-NVSC2022US200533

PATIENT
  Sex: Female

DRUGS (3)
  1. INDOMETHACIN [Suspect]
     Active Substance: INDOMETHACIN
     Indication: Foetal cardiac disorder
     Dosage: 100 MG
     Route: 054
  2. INDOMETHACIN [Suspect]
     Active Substance: INDOMETHACIN
     Dosage: 25 MG FOUR TIMES
     Route: 048
  3. IBUPROFEN [Suspect]
     Active Substance: IBUPROFEN
     Indication: Foetal cardiac disorder
     Dosage: 800 MG, BID
     Route: 065

REACTIONS (4)
  - Premature delivery [Unknown]
  - Maternal exposure during pregnancy [Unknown]
  - Product use in unapproved indication [Unknown]
  - Contraindicated product administered [Unknown]
